FAERS Safety Report 8047825-1 (Version None)
Quarter: 2012Q1

REPORT INFORMATION
  Report Type: 
  Country: None (occurrence: None)
  Receive Date: 20120116
  Receipt Date: 20120110
  Transmission Date: 20120608
  Serious: Yes (Other)
  Sender: FDA-Public Use
  Company Number: PHHY2011CA102423

PATIENT
  Sex: Female
  Weight: 45 kg

DRUGS (14)
  1. DOMPERIDONE [Concomitant]
     Dosage: UNK UKN, UNK
  2. ZOLEDRONOC ACID [Suspect]
     Indication: OSTEOPOROSIS
     Dosage: UNK UKN, UNK
     Route: 042
     Dates: start: 20090305
  3. ZOLEDRONOC ACID [Suspect]
     Dosage: UNK UKN, UNK
     Route: 042
     Dates: start: 20100219
  4. ASPIRIN [Concomitant]
     Dosage: 80 MG, UNK
  5. ADALAT CC [Concomitant]
     Dosage: 60 MG, UNK
  6. CLONIDINE [Concomitant]
     Dosage: 0.1 MG, UNK
  7. CALCIUM [Concomitant]
     Dosage: UNK UKN, UNK
     Dates: start: 20000101
  8. VITAMIN D [Concomitant]
     Dosage: UNK UKN, UNK
     Dates: start: 20000101
  9. ACETAMINOPHEN [Concomitant]
     Dosage: 500 MG, UNK
  10. ZOLEDRONOC ACID [Suspect]
     Dosage: UNK UKN, UNK
     Route: 042
     Dates: start: 20110216
  11. MIACALCIN [Concomitant]
     Dosage: 200 U, UNK
     Dates: start: 20091205
  12. SYNTHROID [Concomitant]
     Dosage: 0.025 MG, UNK
  13. LYRICA [Concomitant]
     Dosage: 25 MG, UNK
  14. MONOCOR [Concomitant]
     Dosage: 5 MG, UNK

REACTIONS (3)
  - LUMBAR VERTEBRAL FRACTURE [None]
  - RENAL FAILURE CHRONIC [None]
  - CREATININE RENAL CLEARANCE DECREASED [None]
